FAERS Safety Report 5115069-9 (Version None)
Quarter: 2006Q3

REPORT INFORMATION
  Report Type: 
  Country: None (occurrence: None)
  Receive Date: 20060925
  Receipt Date: 20060925
  Transmission Date: 20061208
  Serious: Yes (Hospitalization)
  Sender: FDA-Public Use
  Company Number: None

PATIENT
  Age: 61 Year
  Sex: Male
  Weight: 83.3 kg

DRUGS (1)
  1. ALEMTUZMAB 30 MG/ML GENZYME [Suspect]
     Indication: CHRONIC LYMPHOCYTIC LEUKAEMIA
     Dosage: 30 MG INFUSED OVER 2 HRS IV
     Route: 042
     Dates: start: 20060621, end: 20060726

REACTIONS (5)
  - CHILLS [None]
  - DYSPNOEA [None]
  - HYPOTENSION [None]
  - PYREXIA [None]
  - TACHYCARDIA [None]
